FAERS Safety Report 7158823-4 (Version None)
Quarter: 2010Q4

REPORT INFORMATION
  Report Type: 
  Country: None (occurrence: None)
  Receive Date: 20101214
  Receipt Date: 20100707
  Transmission Date: 20110411
  Serious: No
  Sender: FDA-Public Use
  Company Number: US-ASTRAZENECA-2010SE31642

PATIENT
  Age: 62 Year
  Sex: Female
  Weight: 70.3 kg

DRUGS (6)
  1. ROSUVASTATIN [Suspect]
     Route: 048
  2. NIASPAN [Suspect]
     Indication: HYPERLIPIDAEMIA
     Route: 048
     Dates: start: 20100501
  3. OMEGA-3 MARINE TRIGLYCERIDES [Concomitant]
  4. LISINOPRIL [Concomitant]
  5. CARVEDILOL [Concomitant]
  6. ACETYLSALICYLIC ACID [Concomitant]

REACTIONS (4)
  - FEELING HOT [None]
  - FLUSHING [None]
  - MIDDLE INSOMNIA [None]
  - MUSCULAR WEAKNESS [None]
